FAERS Safety Report 22247773 (Version 2)
Quarter: 2023Q2

REPORT INFORMATION
  Report Type: Spontaneous
  Country: DE (occurrence: DE)
  Receive Date: 20230425
  Receipt Date: 20230512
  Transmission Date: 20230721
  Serious: Yes (Hospitalization)
  Sender: FDA-Public Use
  Company Number: DE-JNJFOC-20230445257

PATIENT
  Age: 5 Year
  Sex: Female

DRUGS (1)
  1. REMICADE [Suspect]
     Active Substance: INFLIXIMAB
     Indication: Inflammatory bowel disease
     Dosage: 5 DOSES ADMINISTERED
     Route: 041
     Dates: start: 20221118, end: 20230417

REACTIONS (2)
  - Acute myeloid leukaemia [Not Recovered/Not Resolved]
  - Off label use [Unknown]
